FAERS Safety Report 24807749 (Version 1)
Quarter: 2025Q1

REPORT INFORMATION
  Report Type: Spontaneous
  Country: US (occurrence: US)
  Receive Date: 20250105
  Receipt Date: 20250105
  Transmission Date: 20250408
  Serious: No
  Sender: JOHNSON AND JOHNSON
  Company Number: US-JNJFOC-20241018379

PATIENT
  Sex: Female

DRUGS (2)
  1. ACETAMINOPHEN [Suspect]
     Active Substance: ACETAMINOPHEN
     Indication: Arthralgia
     Route: 065
  2. XELJANZ [Concomitant]
     Active Substance: TOFACITINIB CITRATE
     Indication: Arthralgia
     Dosage: PRODUCT STARTED ABOUT THREE YEARS FREQUENCY TEXT: TWO TIMES A DAY IN MORNING AND EVENING
     Dates: start: 2021

REACTIONS (1)
  - Therapeutic product effect incomplete [Unknown]
